FAERS Safety Report 13612035 (Version 1)
Quarter: 2017Q2

REPORT INFORMATION
  Report Type: Spontaneous
  Country: US (occurrence: US)
  Receive Date: 20170605
  Receipt Date: 20170605
  Transmission Date: 20170830
  Serious: No
  Sender: FDA-Public Use
  Company Number: None

PATIENT
  Age: 64 Year
  Sex: Male
  Weight: 66.8 kg

DRUGS (1)
  1. LEDIPASVIR/SOFOSUVIR [Suspect]
     Active Substance: LEDIPASVIR\SOFOSBUVIR
     Route: 048
     Dates: start: 20160712, end: 20160811

REACTIONS (4)
  - Tinea infection [None]
  - Rash [None]
  - Blood pressure increased [None]
  - Wheezing [None]

NARRATIVE: CASE EVENT DATE: 20160809
